FAERS Safety Report 6754781-2 (Version None)
Quarter: 2010Q2

REPORT INFORMATION
  Report Type: 
  Country: None (occurrence: None)
  Receive Date: 20100603
  Receipt Date: 20100527
  Transmission Date: 20101027
  Serious: Yes (Hospitalization)
  Sender: FDA-Public Use
  Company Number: FR-GENENTECH-269236

PATIENT
  Sex: Male
  Weight: 94 kg

DRUGS (4)
  1. RITUXIMAB [Suspect]
     Indication: B-CELL LYMPHOMA
     Dosage: 845 MG, UNK
     Route: 042
     Dates: start: 20080501, end: 20080618
  2. CISPLATIN [Suspect]
     Indication: LYMPHOMA
     Dosage: 651 MG, UNK
     Route: 042
     Dates: start: 20080501, end: 20080618
  3. CYTARABINE [Suspect]
     Indication: LYMPHOMA
     Dosage: 26.1 G, UNK
     Route: 042
     Dates: start: 20080501, end: 20080618
  4. DEXAMETHASONE [Suspect]
     Indication: LYMPHOMA
     Dosage: 480 MG, UNK
     Route: 042
     Dates: start: 20080501, end: 20080621

REACTIONS (3)
  - BLINDNESS [None]
  - ENCEPHALOPATHY [None]
  - OPTIC NEUROPATHY [None]
